FAERS Safety Report 10386785 (Version 1)
Quarter: 2014Q1

REPORT INFORMATION
  Report Type: Spontaneous
  Country: US (occurrence: None)
  Receive Date: 20140306
  Receipt Date: 20140306
  Transmission Date: 20141002
  Serious: Yes (Other)
  Sender: FDA-Public Use
  Company Number: 163-21880-13062564

PATIENT
  Age: 57 Year
  Sex: Female
  Weight: 82 kg

DRUGS (12)
  1. REVLIMID [Suspect]
     Indication: PLASMA CELL MYELOMA
     Route: 048
     Dates: start: 200912
  2. HYDROCHLOROQUINE SULFATE [Concomitant]
  3. AMITRIPTYLINE HCL [Concomitant]
  4. IBUPROFEN [Concomitant]
  5. ACTONEL (RISEDRONATE SODIUM) [Concomitant]
  6. OMEPRAZOLE [Concomitant]
  7. D3-50 (OTHER THERAPEUTIC PRODUCTS) [Concomitant]
  8. AZITHROMYCIN [Concomitant]
  9. VITAMIN C (ASCORBID ACID) [Concomitant]
  10. PRILOSEC (OMEPRAZOLE) [Concomitant]
  11. OXYCODONE HCL [Concomitant]
  12. SYNTHROID (LEVOTHYROXINE SODIUM) [Concomitant]

REACTIONS (3)
  - Deep vein thrombosis [None]
  - Constipation [None]
  - Contusion [None]
